FAERS Safety Report 4903228-7 (Version None)
Quarter: 2006Q1

REPORT INFORMATION
  Report Type: 
  Country: None (occurrence: None)
  Receive Date: 20060113
  Receipt Date: 20030811
  Transmission Date: 20060701
  Serious: Yes (Other)
  Sender: FDA-Public Use
  Company Number: HQWYE085913AUG03

PATIENT
  Age: 48 Year
  Sex: Female
  Weight: 54.48 kg

DRUGS (4)
  1. PREMPRO [Suspect]
     Indication: HORMONE REPLACEMENT THERAPY
  2. SYNTHROID [Concomitant]
  3. ZOLOFT [Concomitant]
  4. DIAZEPAM [Concomitant]

REACTIONS (1)
  - BREAST CANCER [None]
